FAERS Safety Report 7049340-0 (Version None)
Quarter: 2010Q4

REPORT INFORMATION
  Report Type: 
  Country: None (occurrence: None)
  Receive Date: 20101018
  Receipt Date: 20101006
  Transmission Date: 20110411
  Serious: Yes (Hospitalization)
  Sender: FDA-Public Use
  Company Number: US-ROCHE-732710

PATIENT
  Sex: Male

DRUGS (3)
  1. BEVACIZUMAB [Suspect]
     Dosage: LAST PROTOCOL TREATMENT DATE REPORTED AS 08 SEPTEMBER 2010.
     Route: 065
     Dates: start: 20100623
  2. CISPLATIN [Suspect]
     Dosage: LAST PROTOCOL TREATMENT DATE REPORTED AS 08 SEPTEMBER 2010.
     Route: 065
     Dates: start: 20100623
  3. IRINOTECAN HCL [Suspect]
     Dosage: LAST PROTOCOL TREATMENT DATE REPORTED AS 08 SEPTEMBER 2010.
     Route: 065
     Dates: start: 20100623

REACTIONS (4)
  - DEHYDRATION [None]
  - NAUSEA [None]
  - OESOPHAGITIS [None]
  - VOMITING [None]
